FAERS Safety Report 5589636-2 (Version None)
Quarter: 2008Q1

REPORT INFORMATION
  Report Type: 
  Country: None (occurrence: None)
  Receive Date: 20080114
  Receipt Date: 20080103
  Transmission Date: 20080703
  Serious: Yes (Other)
  Sender: FDA-Public Use
  Company Number: B0360832A

PATIENT
  Age: 37 Year
  Sex: Female

DRUGS (3)
  1. PAROXETINE HYDROCHLORIDE [Suspect]
     Indication: DEPRESSION
     Route: 065
     Dates: start: 19971209
  2. PAROXETINE HYDROCHLORIDE [Suspect]
     Route: 048
  3. DIAZEPAM [Concomitant]
     Dates: start: 20000614

REACTIONS (13)
  - ANGER [None]
  - DEPRESSION [None]
  - DRUG DEPENDENCE [None]
  - DRUG WITHDRAWAL SYNDROME [None]
  - FRUSTRATION [None]
  - IRRITABILITY [None]
  - LETHARGY [None]
  - MEMORY IMPAIRMENT [None]
  - NIGHT SWEATS [None]
  - PARAESTHESIA [None]
  - SEXUAL DYSFUNCTION [None]
  - TREMOR [None]
  - URTICARIA [None]
